FAERS Safety Report 14777401 (Version 2)
Quarter: 2018Q2

REPORT INFORMATION
  Report Type: Report from Study
  Country: US (occurrence: US)
  Receive Date: 20180419
  Receipt Date: 20180426
  Transmission Date: 20180711
  Serious: Yes (Other)
  Sender: FDA-Public Use
  Company Number: US-ROCHE-1986144

PATIENT
  Sex: Female

DRUGS (12)
  1. CELLCEPT [Suspect]
     Active Substance: MYCOPHENOLATE MOFETIL\MYCOPHENOLATE MOFETIL HYDROCHLORIDE
     Indication: SYSTEMIC LUPUS ERYTHEMATOSUS
     Dosage: 200MG/ML SUSP: 1400MG (7 ML) BID
     Route: 048
  2. CELLCEPT [Suspect]
     Active Substance: MYCOPHENOLATE MOFETIL\MYCOPHENOLATE MOFETIL HYDROCHLORIDE
     Indication: HEREDITARY HAEMOLYTIC ANAEMIA
     Route: 065
     Dates: start: 201711
  3. MELATONIN [Concomitant]
     Active Substance: MELATONIN
     Dosage: AT BEDTIME
     Route: 065
  4. CELLCEPT [Suspect]
     Active Substance: MYCOPHENOLATE MOFETIL\MYCOPHENOLATE MOFETIL HYDROCHLORIDE
     Indication: CHRONIC GRAFT VERSUS HOST DISEASE
     Route: 048
  5. VITAMIN B12 [Concomitant]
     Active Substance: CYANOCOBALAMIN
     Dosage: 1000,5000 MG
     Route: 065
  6. CELLCEPT [Suspect]
     Active Substance: MYCOPHENOLATE MOFETIL\MYCOPHENOLATE MOFETIL HYDROCHLORIDE
     Indication: SYSTEMIC LUPUS ERYTHEMATOSUS
     Route: 065
  7. CELLCEPT [Suspect]
     Active Substance: MYCOPHENOLATE MOFETIL\MYCOPHENOLATE MOFETIL HYDROCHLORIDE
     Indication: HEREDITARY HAEMOLYTIC ANAEMIA
     Dosage: 250MG CAPS
     Route: 048
  8. PREDNISONE. [Concomitant]
     Active Substance: PREDNISONE
     Dosage: 1 TAB IN AM AND 1/2 IN PM ORALLY WITH FOOD
     Route: 065
  9. VITAMIN D3 [Concomitant]
     Active Substance: CHOLECALCIFEROL
     Dosage: 2000 INTL UNITS
     Route: 048
  10. LYSINE [Concomitant]
     Active Substance: LYSINE
     Route: 048
  11. CELLCEPT [Suspect]
     Active Substance: MYCOPHENOLATE MOFETIL\MYCOPHENOLATE MOFETIL HYDROCHLORIDE
     Indication: CHRONIC GRAFT VERSUS HOST DISEASE
     Route: 065
     Dates: start: 201511
  12. PLAQUENIL [Concomitant]
     Active Substance: HYDROXYCHLOROQUINE SULFATE
     Route: 048

REACTIONS (14)
  - Yellow skin [Recovered/Resolved with Sequelae]
  - Rash erythematous [Unknown]
  - Yellow skin [Not Recovered/Not Resolved]
  - Rash [Unknown]
  - Fatigue [Recovered/Resolved]
  - Pruritus [Unknown]
  - Nausea [Recovered/Resolved]
  - Swelling [Unknown]
  - Scleral discolouration [Unknown]
  - Off label use [Unknown]
  - Skin discolouration [Unknown]
  - Erythema [Unknown]
  - Pain in extremity [Unknown]
  - Intentional product use issue [Unknown]
